FAERS Safety Report 9173912 (Version 1)
Quarter: 2013Q1

REPORT INFORMATION
  Report Type: Spontaneous
  Country: US (occurrence: US)
  Receive Date: 20130320
  Receipt Date: 20130320
  Transmission Date: 20140127
  Serious: Yes (Hospitalization, Other)
  Sender: FDA-Public Use
  Company Number: US-BRISTOL-MYERS SQUIBB COMPANY-17469925

PATIENT
  Age: 55 Year
  Sex: Male
  Weight: 78.46 kg

DRUGS (7)
  1. ABILIFY [Suspect]
     Indication: BIPOLAR DISORDER
     Dosage: DOSE INCREASED TO 15MG
  2. HALDOL [Suspect]
     Indication: BIPOLAR DISORDER
     Dosage: DOSE REDUCED TO 7MG:01DEC2012
  3. AMBIEN [Concomitant]
  4. LAMICTAL [Concomitant]
  5. KLONOPIN [Concomitant]
     Dosage: 4MG DECREASED TO 2MG
  6. TEGRETOL [Concomitant]
     Dosage: DOSE INCREASED TO 1200MG
  7. TESTOSTERONE [Concomitant]

REACTIONS (7)
  - Mania [Unknown]
  - Endocrine disorder [Unknown]
  - Insomnia [Unknown]
  - Erection increased [Not Recovered/Not Resolved]
  - Libido decreased [Not Recovered/Not Resolved]
  - Ejaculation failure [Not Recovered/Not Resolved]
  - Weight decreased [Unknown]
